FAERS Safety Report 4696033-0 (Version None)
Quarter: 2005Q2

REPORT INFORMATION
  Report Type: 
  Country: None (occurrence: None)
  Receive Date: 20050621
  Receipt Date: 20050615
  Transmission Date: 20051028
  Serious: Yes (Life-Threatening)
  Sender: FDA-Public Use
  Company Number: 406886

PATIENT
  Age: 70 Year
  Sex: Male

DRUGS (5)
  1. DIGOXIN [Suspect]
     Dosage: 125MCG PER DAY
     Route: 048
     Dates: start: 20050207, end: 20050419
  2. CARVEDILOL [Suspect]
     Dosage: 6.3MG PER DAY
     Route: 048
     Dates: start: 20050207, end: 20050419
  3. ENALAPRIL MALEATE [Suspect]
     Indication: ESSENTIAL HYPERTENSION
     Dosage: 20MG PER DAY
     Route: 048
     Dates: start: 20050207, end: 20050419
  4. ALDACTONE [Suspect]
     Indication: ESSENTIAL HYPERTENSION
     Dosage: 25MG PER DAY
     Route: 048
     Dates: start: 20050207, end: 20050419
  5. TORSEMIDE [Suspect]
     Indication: ESSENTIAL HYPERTENSION
     Dosage: 10MG PER DAY
     Route: 048
     Dates: start: 20050207

REACTIONS (3)
  - ATRIOVENTRICULAR BLOCK COMPLETE [None]
  - HYPERKALAEMIA [None]
  - RENAL FAILURE ACUTE [None]
